FAERS Safety Report 12720759 (Version 2)
Quarter: 2016Q3

REPORT INFORMATION
  Report Type: Spontaneous
  Country: IN (occurrence: IN)
  Receive Date: 20160907
  Receipt Date: 20160928
  Transmission Date: 20161109
  Serious: Yes (Hospitalization)
  Sender: FDA-Public Use
  Company Number: IN-JNJFOC-20160901663

PATIENT
  Age: 38 Year
  Sex: Female
  Weight: 97 kg

DRUGS (1)
  1. CANAGLIFLOZIN [Suspect]
     Active Substance: CANAGLIFLOZIN
     Indication: DIABETES MELLITUS
     Route: 065

REACTIONS (3)
  - Weight decreased [Unknown]
  - Diabetic ketoacidosis [Recovered/Resolved]
  - Dialysis [Recovered/Resolved]
